FAERS Safety Report 6524332-6 (Version None)
Quarter: 2009Q4

REPORT INFORMATION
  Report Type: 
  Country: None (occurrence: None)
  Receive Date: 20091231
  Receipt Date: 20091210
  Transmission Date: 20100525
  Serious: Yes (Death, Hospitalization)
  Sender: FDA-Public Use
  Company Number: US-MERCK-0911USA01516

PATIENT
  Age: 77 Year
  Sex: Male
  Weight: 70 kg

DRUGS (28)
  1. ZOLINZA [Suspect]
     Indication: MYCOSIS FUNGOIDES
     Route: 048
     Dates: start: 20090915, end: 20090929
  2. ZOLINZA [Suspect]
     Route: 048
     Dates: start: 20090930, end: 20090930
  3. ZOLINZA [Suspect]
     Route: 048
     Dates: start: 20091001, end: 20091001
  4. ZOLINZA [Suspect]
     Route: 048
     Dates: start: 20091002, end: 20091002
  5. ZOLINZA [Suspect]
     Route: 048
     Dates: start: 20091003
  6. AUGMENTIN [Concomitant]
     Route: 065
     Dates: end: 20090929
  7. DARVOCET-N 100 [Concomitant]
     Route: 065
  8. AMOXICILLIN [Concomitant]
     Route: 065
     Dates: end: 20090929
  9. NEUPOGEN [Concomitant]
     Route: 065
  10. PROCHLORPERAZINE MALEATE [Concomitant]
     Route: 065
  11. DARBEPOETIN ALFA [Concomitant]
     Route: 065
  12. PREDNISONE [Concomitant]
     Route: 065
  13. RENAGEL [Concomitant]
     Route: 065
  14. ALLOPURINOL [Concomitant]
     Route: 065
  15. ISOSORBIDE DINITRATE [Concomitant]
     Route: 065
  16. METOPROLOL TARTRATE [Concomitant]
     Route: 065
  17. POTASSIUM (UNSPECIFIED) [Concomitant]
     Route: 065
  18. FUROSEMIDE [Concomitant]
     Route: 065
  19. ACTOS [Concomitant]
     Route: 065
  20. NORVASC [Concomitant]
     Route: 065
  21. NEXIUM [Concomitant]
     Route: 065
  22. FLOMAX [Concomitant]
     Route: 065
  23. TOPROL-XL [Concomitant]
     Route: 065
  24. LESCOL [Concomitant]
     Route: 065
  25. METFORMIN HYDROCHLORIDE [Concomitant]
     Route: 065
  26. GLYBURIDE [Concomitant]
     Route: 065
  27. PROBENECID [Concomitant]
     Route: 065
  28. LISINOPRIL [Concomitant]
     Route: 048

REACTIONS (7)
  - ACUTE PULMONARY OEDEMA [None]
  - CARDIAC FAILURE CONGESTIVE [None]
  - DIARRHOEA [None]
  - MYCOSIS FUNGOIDES [None]
  - MYOCARDIAL INFARCTION [None]
  - PNEUMONIA [None]
  - RESPIRATORY FAILURE [None]
